FAERS Safety Report 6527356-8 (Version None)
Quarter: 2009Q4

REPORT INFORMATION
  Report Type: 
  Country: None (occurrence: None)
  Receive Date: 20091222
  Receipt Date: 20091007
  Transmission Date: 20100525
  Serious: No
  Sender: FDA-Public Use
  Company Number: ALL1-2009-03119

PATIENT
  Age: 43 Year
  Sex: Female
  Weight: 49.9 kg

DRUGS (3)
  1. VYVANSE [Suspect]
     Indication: ATTENTION DEFICIT/HYPERACTIVITY DISORDER
     Dosage: 70 MG, 1X/DAY:QD, ORAL
     Route: 048
     Dates: start: 20080101
  2. KLONOPIN [Suspect]
     Indication: DEPRESSION
     Dosage: MG, AS REQ'D, ORAL
     Route: 048
     Dates: start: 20080101
  3. WELLBUTRIN [Suspect]
     Indication: DEPRESSION
     Dosage: MG. TABLET DAILY, ORAL
     Route: 048
     Dates: start: 20090901, end: 20090901

REACTIONS (5)
  - DEPRESSION [None]
  - DRUG EFFECT INCREASED [None]
  - ENERGY INCREASED [None]
  - INHIBITORY DRUG INTERACTION [None]
  - WEIGHT INCREASED [None]
